FAERS Safety Report 8573445-6 (Version None)
Quarter: 2012Q3

REPORT INFORMATION
  Report Type: 
  Country: None (occurrence: None)
  Receive Date: 20120806
  Receipt Date: 20120802
  Transmission Date: 20120928
  Serious: No
  Sender: FDA-Public Use
  Company Number: US-PFIZER INC-2012153610

PATIENT
  Age: 71 Year
  Sex: Female
  Weight: 91 kg

DRUGS (15)
  1. NEURONTIN [Concomitant]
     Dosage: 600 MG, 3X/DAY
  2. POTASSIUM [Concomitant]
     Dosage: 10 MG, 1X/DAY
  3. ACID CONTROLLER COMPLETE [Concomitant]
     Dosage: 20 MG, 2X/DAY
  4. VITAMIN B-12 [Concomitant]
     Dosage: UNK, 1X/DAY
  5. VITAMIN D [Concomitant]
     Dosage: 2000 IU, 1X/DAY
  6. MUCINEX DM [Concomitant]
     Dosage: UNK, 2X/DAY
  7. ALBUTEROL [Concomitant]
     Dosage: UNK, 4X/DAY
  8. NORCO [Concomitant]
     Dosage: 10/325 MG/MG, 1X/DAY
  9. LIPITOR [Suspect]
     Dosage: 20 MG, 1X/DAY
     Route: 048
  10. BENICAR [Concomitant]
     Dosage: 40 MG, 1X/DAY
     Route: 048
  11. LIPITOR [Suspect]
     Indication: BLOOD CHOLESTEROL INCREASED
     Dosage: 40 MG, 1X/DAY
     Route: 048
  12. LASIX [Concomitant]
     Dosage: 20 MG, 1X/DAY
  13. SYNTHROID [Concomitant]
     Dosage: 125 MG, 1X/DAY
  14. METHADONE [Concomitant]
     Dosage: 10 MG (TWO 5MG ), 3X/DAY
     Route: 048
  15. DILAUDID [Concomitant]
     Dosage: 4 MG, 4X/DAY

REACTIONS (4)
  - MALAISE [None]
  - ABDOMINAL DISCOMFORT [None]
  - DIARRHOEA [None]
  - OVERWEIGHT [None]
